FAERS Safety Report 19147101 (Version 3)
Quarter: 2021Q3

REPORT INFORMATION
  Report Type: Spontaneous
  Country: US (occurrence: US)
  Receive Date: 20210416
  Receipt Date: 20210714
  Transmission Date: 20211014
  Serious: Yes (Other)
  Sender: FDA-Public Use
  Company Number: US-ASTRAZENECA-2019SE09668

PATIENT
  Age: 26638 Day
  Sex: Male

DRUGS (86)
  1. FLOMAX [Concomitant]
     Active Substance: TAMSULOSIN HYDROCHLORIDE
     Dates: start: 20050419
  2. LEVITRA [Concomitant]
     Active Substance: VARDENAFIL HYDROCHLORIDE
  3. FINASTERIDE. [Concomitant]
     Active Substance: FINASTERIDE
  4. METFORMIN [Concomitant]
     Active Substance: METFORMIN HYDROCHLORIDE
     Indication: DIABETES MELLITUS
  5. LOVASTATIN. [Concomitant]
     Active Substance: LOVASTATIN
  6. ACYCLOVIR. [Concomitant]
     Active Substance: ACYCLOVIR
  7. CLINDAMYCIN HCL [Concomitant]
     Active Substance: CLINDAMYCIN HYDROCHLORIDE
  8. MORPHINE SULF [Concomitant]
     Active Substance: MORPHINE SULFATE
  9. PENTOXIFYLLINE. [Concomitant]
     Active Substance: PENTOXIFYLLINE
  10. DULOXETINE. [Concomitant]
     Active Substance: DULOXETINE
  11. EPOGEN [Concomitant]
     Active Substance: ERYTHROPOIETIN
  12. ZOSYN [Concomitant]
     Active Substance: PIPERACILLIN SODIUM\TAZOBACTAM SODIUM
  13. AMLODIPINE [Concomitant]
     Active Substance: AMLODIPINE BESYLATE
     Indication: HYPERTENSION
  14. PHENTERMINE. [Concomitant]
     Active Substance: PHENTERMINE
  15. PHENAZOPYRIDINE. [Concomitant]
     Active Substance: PHENAZOPYRIDINE
  16. PSEUDOVENT [Concomitant]
  17. TETRACYCLINE [Concomitant]
     Active Substance: TETRACYCLINE
  18. MIRTAZAPINE. [Concomitant]
     Active Substance: MIRTAZAPINE
  19. ADVIL [Concomitant]
     Active Substance: IBUPROFEN
  20. DOXYCYCLINE HYCLATE. [Concomitant]
     Active Substance: DOXYCYCLINE HYCLATE
  21. COLCRYS [Concomitant]
     Active Substance: COLCHICINE
  22. AMLODIPINE [Concomitant]
     Active Substance: AMLODIPINE BESYLATE
  23. SIMVASTATIN. [Concomitant]
     Active Substance: SIMVASTATIN
     Indication: BLOOD CHOLESTEROL ABNORMAL
  24. VERAPAMIL [Concomitant]
     Active Substance: VERAPAMIL HYDROCHLORIDE
  25. MYTUSSIN [Concomitant]
  26. YCOLAX [Concomitant]
  27. PAROXETINE. [Concomitant]
     Active Substance: PAROXETINE
  28. VITAMIN B12 [Concomitant]
     Active Substance: CYANOCOBALAMIN
  29. PRILOSEC [Suspect]
     Active Substance: OMEPRAZOLE MAGNESIUM
     Indication: DYSPEPSIA
     Dosage: 40.0MG UNKNOWN
     Route: 048
     Dates: start: 20040105, end: 20160217
  30. PRILOSEC OTC [Suspect]
     Active Substance: OMEPRAZOLE MAGNESIUM
     Route: 048
  31. VIAGRA [Concomitant]
     Active Substance: SILDENAFIL CITRATE
     Dates: start: 20050311
  32. ZOLOFT [Concomitant]
     Active Substance: SERTRALINE HYDROCHLORIDE
  33. ZAROXOLYN [Concomitant]
     Active Substance: METOLAZONE
  34. CLOBETASOL [Concomitant]
     Active Substance: CLOBETASOL
  35. ALLOPURINOL. [Concomitant]
     Active Substance: ALLOPURINOL
     Indication: GOUT
  36. HYDROCODONE/PARACETAMOL [Concomitant]
     Active Substance: ACETAMINOPHEN\HYDROCODONE BITARTRATE
  37. DICLOFENAC SOD [Concomitant]
     Active Substance: DICLOFENAC SODIUM
  38. GENERLAC [Concomitant]
     Active Substance: LACTULOSE
  39. TRAMADOL HCL [Concomitant]
     Active Substance: TRAMADOL HYDROCHLORIDE
  40. AVODART [Concomitant]
     Active Substance: DUTASTERIDE
  41. BACLOFEN. [Concomitant]
     Active Substance: BACLOFEN
  42. TEMOVATE [Concomitant]
     Active Substance: CLOBETASOL PROPIONATE
  43. SINEQUAN [Concomitant]
     Active Substance: DOXEPIN HYDROCHLORIDE
  44. TETANUS [Concomitant]
     Active Substance: TETANUS ANTITOXIN
  45. NAPROXEN. [Concomitant]
     Active Substance: NAPROXEN
     Dates: start: 20050316
  46. MIRALAX [Concomitant]
     Active Substance: POLYETHYLENE GLYCOL 3350
  47. LASIX [Concomitant]
     Active Substance: FUROSEMIDE
  48. METRONIDAZOLE. [Concomitant]
     Active Substance: METRONIDAZOLE
  49. CIPROFLOXACIN. [Concomitant]
     Active Substance: CIPROFLOXACIN
  50. ROZEREM [Concomitant]
     Active Substance: RAMELTEON
  51. DAYPRO [Concomitant]
     Active Substance: OXAPROZIN
  52. AUGMENTIN [Concomitant]
     Active Substance: AMOXICILLIN\CLAVULANATE POTASSIUM
  53. GLUCOSE [Concomitant]
     Active Substance: DEXTROSE
  54. AMBIEN [Concomitant]
     Active Substance: ZOLPIDEM TARTRATE
     Dates: start: 20050413
  55. DOXEPIN [Concomitant]
     Active Substance: DOXEPIN
  56. OXYCONTIN [Concomitant]
     Active Substance: OXYCODONE HYDROCHLORIDE
  57. METHYLPREDNISOLONE. [Concomitant]
     Active Substance: METHYLPREDNISOLONE
  58. MELOXICAM. [Concomitant]
     Active Substance: MELOXICAM
  59. PROCHLORPERAZINE. [Concomitant]
     Active Substance: PROCHLORPERAZINE
  60. ACETAMINOPHEN?CODEIN [Concomitant]
  61. SENOKOT [Concomitant]
     Active Substance: SENNOSIDES
  62. HYDROCODONE [Concomitant]
     Active Substance: HYDROCODONE
     Dates: start: 20050316
  63. LISINOPRIL. [Concomitant]
     Active Substance: LISINOPRIL
  64. TRAZODONE [Concomitant]
     Active Substance: TRAZODONE HYDROCHLORIDE
     Indication: INSOMNIA
  65. ALPRAZOLAM. [Concomitant]
     Active Substance: ALPRAZOLAM
  66. CELEBREX [Concomitant]
     Active Substance: CELECOXIB
  67. CEPHALEXIN. [Concomitant]
     Active Substance: CEPHALEXIN
  68. FLUOXETINE [Concomitant]
     Active Substance: FLUOXETINE HYDROCHLORIDE
  69. FLUTICASONE PROP [Concomitant]
     Active Substance: FLUTICASONE PROPIONATE
  70. FLOMAX [Concomitant]
     Active Substance: TAMSULOSIN HYDROCHLORIDE
  71. AMOXICILLIN. [Concomitant]
     Active Substance: AMOXICILLIN
  72. ERYTHROMYCIN. [Concomitant]
     Active Substance: ERYTHROMYCIN
  73. ZOSTAVAX [Concomitant]
     Active Substance: VARICELLA-ZOSTER VIRUS STRAIN OKA/MERCK LIVE ANTIGEN
  74. LYRICA [Concomitant]
     Active Substance: PREGABALIN
  75. NEXIUM [Suspect]
     Active Substance: ESOMEPRAZOLE MAGNESIUM
     Indication: DYSPEPSIA
     Dosage: 40.0MG UNKNOWN
     Route: 048
     Dates: start: 20040602, end: 20160217
  76. NEURONTIN [Concomitant]
     Active Substance: GABAPENTIN
  77. POTASSIUM CHLORIDE. [Concomitant]
     Active Substance: POTASSIUM CHLORIDE
  78. LOSARTAN. [Concomitant]
     Active Substance: LOSARTAN
     Indication: HYPERTENSION
  79. MOMETASONE FUROATE. [Concomitant]
     Active Substance: MOMETASONE FUROATE
  80. CLONAZEPAM. [Concomitant]
     Active Substance: CLONAZEPAM
  81. TERAZOSIN [Concomitant]
     Active Substance: TERAZOSIN HYDROCHLORIDE
  82. LORCET [Concomitant]
     Active Substance: ACETAMINOPHEN\HYDROCODONE BITARTRATE
  83. CYCLOBENZAPRINE. [Concomitant]
     Active Substance: CYCLOBENZAPRINE
  84. PREVNAR [Concomitant]
     Active Substance: PNEUMOCOCCAL 7-VALENT CONJUGATE VACCINE (DIPHTHERIA CRM197 PROTEIN)
  85. PRILOSEC [Suspect]
     Active Substance: OMEPRAZOLE MAGNESIUM
     Indication: DYSPEPSIA
     Route: 048
  86. PRILOSEC [Suspect]
     Active Substance: OMEPRAZOLE MAGNESIUM
     Indication: DYSPEPSIA
     Route: 048
     Dates: start: 20040330

REACTIONS (4)
  - Rebound acid hypersecretion [Unknown]
  - Chronic kidney disease [Not Recovered/Not Resolved]
  - Acute kidney injury [Not Recovered/Not Resolved]
  - Renal failure [Unknown]

NARRATIVE: CASE EVENT DATE: 20130404
